FAERS Safety Report 11463883 (Version 1)
Quarter: 2015Q3

REPORT INFORMATION
  Report Type: Spontaneous
  Country: US (occurrence: US)
  Receive Date: 20150831
  Receipt Date: 20150831
  Transmission Date: 20151125
  Serious: No
  Sender: FDA-Public Use
  Company Number: US-ELI_LILLY_AND_COMPANY-US201105003128

PATIENT
  Age: 39 Year
  Sex: Female

DRUGS (4)
  1. SEROQUEL [Concomitant]
     Active Substance: QUETIAPINE FUMARATE
  2. LAMICTAL [Concomitant]
     Active Substance: LAMOTRIGINE
  3. CYMBALTA [Suspect]
     Active Substance: DULOXETINE HYDROCHLORIDE
     Indication: BIPOLAR DISORDER
     Dosage: 60 MG, QD
     Dates: end: 201103
  4. CYMBALTA [Suspect]
     Active Substance: DULOXETINE HYDROCHLORIDE
     Dosage: 120 MG, QD
     Dates: start: 201103

REACTIONS (4)
  - Pain in extremity [Unknown]
  - Burning sensation [Unknown]
  - Muscle spasms [Unknown]
  - Off label use [Not Recovered/Not Resolved]
